FAERS Safety Report 4954212-9 (Version None)
Quarter: 2006Q1

REPORT INFORMATION
  Report Type: 
  Country: None (occurrence: None)
  Receive Date: 20060327
  Receipt Date: 20051004
  Transmission Date: 20060701
  Serious: Yes (Hospitalization)
  Sender: FDA-Public Use
  Company Number: US-MERCK-0510USA03538

PATIENT
  Age: 53 Year
  Sex: Male

DRUGS (16)
  1. VIOXX [Suspect]
     Indication: OSTEOARTHRITIS
     Route: 048
  2. AMARYL [Concomitant]
     Route: 065
  3. THEOPHYLLINE [Concomitant]
     Route: 065
  4. ACCUPRIL [Concomitant]
     Route: 065
  5. MOBIC [Concomitant]
     Route: 065
  6. BUSPAR [Concomitant]
     Route: 065
  7. METFORMIN [Concomitant]
     Route: 065
  8. SINGULAIR [Concomitant]
     Route: 065
  9. OMEPRAZOLE [Concomitant]
     Route: 065
  10. WELLBUTRIN SR [Concomitant]
     Route: 065
  11. ZOCOR [Concomitant]
     Route: 065
  12. LANTUS [Concomitant]
     Route: 065
  13. HUMULIN R [Concomitant]
     Route: 065
  14. ALBUTEROL [Concomitant]
     Route: 065
  15. COMBIVENT [Concomitant]
     Route: 065
  16. ADVAIR DISKUS 100/50 [Concomitant]
     Route: 065

REACTIONS (6)
  - ARTHRALGIA [None]
  - CHEST PAIN [None]
  - CHRONIC OBSTRUCTIVE PULMONARY DISEASE [None]
  - CORONARY ARTERY STENOSIS [None]
  - DIABETES MELLITUS [None]
  - HERPES ZOSTER [None]
